FAERS Safety Report 6704057-4 (Version None)
Quarter: 2010Q2

REPORT INFORMATION
  Report Type: 
  Country: None (occurrence: None)
  Receive Date: 20100423
  Receipt Date: 20100208
  Transmission Date: 20101027
  Serious: No
  Sender: FDA-Public Use
  Company Number: ALL1-2010-00748

PATIENT
  Age: 14 Year
  Sex: Male
  Weight: 82.5 kg

DRUGS (3)
  1. VYVANSE [Suspect]
     Indication: DRUG USE FOR UNKNOWN INDICATION
     Dosage: 60 MG, 1X/1 DAY:QD, ORAL, 70 MG, 1X/DAY:QD, ORAL
     Route: 048
     Dates: start: 20080101, end: 20091001
  2. VYVANSE [Suspect]
     Indication: DRUG USE FOR UNKNOWN INDICATION
     Dosage: 60 MG, 1X/1 DAY:QD, ORAL, 70 MG, 1X/DAY:QD, ORAL
     Route: 048
     Dates: start: 20091001, end: 20100204
  3. VYVANSE [Suspect]
     Indication: DRUG USE FOR UNKNOWN INDICATION
     Dosage: 60 MG, 1X/1 DAY:QD, ORAL, 70 MG, 1X/DAY:QD, ORAL
     Route: 048
     Dates: start: 20100205

REACTIONS (8)
  - AMNESIA [None]
  - BODY TEMPERATURE FLUCTUATION [None]
  - DISTURBANCE IN ATTENTION [None]
  - FLAT AFFECT [None]
  - INFLUENZA LIKE ILLNESS [None]
  - OFF LABEL USE [None]
  - PERIPHERAL COLDNESS [None]
  - SINUSITIS [None]
